FAERS Safety Report 5832488-3 (Version None)
Quarter: 2008Q3

REPORT INFORMATION
  Report Type: 
  Country: None (occurrence: None)
  Receive Date: 20080722
  Receipt Date: 20080506
  Transmission Date: 20090109
  Serious: Yes (Other)
  Sender: FDA-Public Use
  Company Number: 161765

PATIENT
  Age: 42 Year
  Sex: Female
  Weight: 52.1637 kg

DRUGS (5)
  1. AVONEX [Suspect]
     Indication: MULTIPLE SCLEROSIS
     Dosage: 30 UG;QW;IM; 30 UG;QW;IM; 30 UG;QW;IM
     Route: 030
     Dates: start: 19980101, end: 20020401
  2. AVONEX [Suspect]
     Indication: MULTIPLE SCLEROSIS
     Dosage: 30 UG;QW;IM; 30 UG;QW;IM; 30 UG;QW;IM
     Route: 030
     Dates: start: 20020501, end: 20030101
  3. AVONEX [Suspect]
     Indication: MULTIPLE SCLEROSIS
     Dosage: 30 UG;QW;IM; 30 UG;QW;IM; 30 UG;QW;IM
     Route: 030
     Dates: start: 20030101
  4. AMANTADINE HCL [Concomitant]
  5. BACLOFEN [Concomitant]

REACTIONS (3)
  - ABORTION SPONTANEOUS [None]
  - DEPRESSION [None]
  - INJECTION SITE PAIN [None]
